FAERS Safety Report 25704414 (Version 1)
Quarter: 2025Q3

REPORT INFORMATION
  Report Type: Report from Study
  Country: US (occurrence: US)
  Receive Date: 20250820
  Receipt Date: 20250820
  Transmission Date: 20251020
  Serious: Yes (Other)
  Sender: TAKEDA
  Company Number: US-TAKEDA-2025TUS032651

PATIENT
  Sex: Male

DRUGS (3)
  1. FRUQUINTINIB [Suspect]
     Active Substance: FRUQUINTINIB
     Indication: Colon cancer
  2. FRUQUINTINIB [Suspect]
     Active Substance: FRUQUINTINIB
  3. ASPIRIN [Concomitant]
     Active Substance: ASPIRIN

REACTIONS (7)
  - Colon cancer [Unknown]
  - Blister [Not Recovered/Not Resolved]
  - Skin haemorrhage [Recovering/Resolving]
  - Product dose omission issue [Recovering/Resolving]
  - Peripheral swelling [Recovering/Resolving]
  - Scab [Recovering/Resolving]
  - Pain in extremity [Not Recovered/Not Resolved]
